FAERS Safety Report 21644714 (Version 1)
Quarter: 2022Q4

REPORT INFORMATION
  Report Type: Report from Study
  Country: CO (occurrence: CO)
  Receive Date: 20221125
  Receipt Date: 20221125
  Transmission Date: 20230113
  Serious: Yes (Other)
  Sender: FDA-Public Use
  Company Number: CO-ABBVIE-4214753

PATIENT
  Sex: Female
  Weight: 70 kg

DRUGS (1)
  1. HUMIRA [Suspect]
     Active Substance: ADALIMUMAB
     Indication: Colitis ulcerative
     Dosage: FORM STRENGTH 40 MILLIGRAMS
     Route: 058
     Dates: start: 20210619, end: 20221009

REACTIONS (11)
  - Syncope [Not Recovered/Not Resolved]
  - Abdominal distension [Not Recovered/Not Resolved]
  - Heart rate abnormal [Not Recovered/Not Resolved]
  - Pain [Not Recovered/Not Resolved]
  - Hypotension [Not Recovered/Not Resolved]
  - Peripheral swelling [Recovering/Resolving]
  - Hypotonia [Not Recovered/Not Resolved]
  - Weight increased [Recovering/Resolving]
  - Asphyxia [Not Recovered/Not Resolved]
  - Syncope [Not Recovered/Not Resolved]
  - Hypotension [Not Recovered/Not Resolved]
